FAERS Safety Report 9396218 (Version 4)
Quarter: 2013Q4

REPORT INFORMATION
  Report Type: Spontaneous
  Country: US (occurrence: US)
  Receive Date: 20130711
  Receipt Date: 20131217
  Transmission Date: 20140711
  Serious: Yes (Other)
  Sender: FDA-Public Use
  Company Number: US-PFIZER INC-2013094126

PATIENT
  Age: 53 Year
  Sex: Female

DRUGS (8)
  1. ENBREL [Suspect]
     Indication: RHEUMATOID ARTHRITIS
     Dosage: 50 MG, QWK
     Dates: start: 20000301
  2. ENBREL [Suspect]
     Dosage: 25 MG, 2X/WEEK
  3. ENBREL [Suspect]
  4. METHOTREXATE SODIUM [Suspect]
     Dosage: 2.5 MG, 8 TABLETS QWK
  5. METHOTREXATE [Suspect]
     Dosage: UNK
     Route: 048
  6. METHOTREXATE [Suspect]
     Dosage: 20 MG, QWK (2.5 MG, 8 TABLETS QWK)
  7. PLAVIX [Suspect]
     Dosage: UNK
  8. PREDNISONE [Concomitant]
     Dosage: 4 MG, QD

REACTIONS (23)
  - Arthropathy [Recovered/Resolved]
  - Musculoskeletal disorder [Recovered/Resolved]
  - Joint destruction [Recovered/Resolved]
  - Fatigue [Not Recovered/Not Resolved]
  - Joint swelling [Recovered/Resolved]
  - Arthralgia [Recovered/Resolved]
  - Bursitis [Not Recovered/Not Resolved]
  - Stomatitis [Recovered/Resolved]
  - Diarrhoea [Recovered/Resolved]
  - Chapped lips [Not Recovered/Not Resolved]
  - Extremity contracture [Not Recovered/Not Resolved]
  - Hand deformity [Not Recovered/Not Resolved]
  - Pain in extremity [Not Recovered/Not Resolved]
  - Local swelling [Not Recovered/Not Resolved]
  - Gait disturbance [Not Recovered/Not Resolved]
  - Condition aggravated [Recovered/Resolved]
  - Foot deformity [Not Recovered/Not Resolved]
  - Arthritis [Not Recovered/Not Resolved]
  - Musculoskeletal stiffness [Not Recovered/Not Resolved]
  - Contusion [Not Recovered/Not Resolved]
  - Drug ineffective [Recovered/Resolved]
  - Injection site pain [Not Recovered/Not Resolved]
  - Injection site bruising [Not Recovered/Not Resolved]
